FAERS Safety Report 6125801-3 (Version None)
Quarter: 2009Q1

REPORT INFORMATION
  Report Type: 
  Country: None (occurrence: None)
  Receive Date: 20090318
  Receipt Date: 20090303
  Transmission Date: 20090719
  Serious: Yes (Hospitalization, Disabling)
  Sender: FDA-Public Use
  Company Number: 2009S1003744

PATIENT
  Sex: Male

DRUGS (7)
  1. EFAVIRENZ [Suspect]
     Indication: HIV INFECTION
  2. LAMIVUDINE [Suspect]
     Indication: HIV INFECTION
  3. ZIDOVUDINE [Suspect]
     Indication: HIV INFECTION
  4. ZIDOVUDINE (PREV.) [Concomitant]
  5. DIDANOSINE (PREV.) [Concomitant]
  6. NELFINAVIR (PREV.) [Concomitant]
  7. COTRIMOXAZOLE (PREV.) [Concomitant]

REACTIONS (15)
  - ACUTE HEPATIC FAILURE [None]
  - CACHEXIA [None]
  - CHOLESTASIS [None]
  - COMPLICATIONS OF TRANSPLANTED LIVER [None]
  - HEPATIC ENCEPHALOPATHY [None]
  - HEPATIC NECROSIS [None]
  - HEPATITIS [None]
  - HYPERLIPIDAEMIA [None]
  - HYPERTENSION [None]
  - LIVER TRANSPLANT [None]
  - LIVER TRANSPLANT REJECTION [None]
  - MYOPATHY [None]
  - RASH [None]
  - RENAL IMPAIRMENT [None]
  - SURGICAL PROCEDURE REPEATED [None]
